FAERS Safety Report 21519799 (Version 3)
Quarter: 2022Q4

REPORT INFORMATION
  Report Type: Spontaneous
  Country: JP (occurrence: JP)
  Receive Date: 20221028
  Receipt Date: 20221121
  Transmission Date: 20230113
  Serious: Yes (Hospitalization)
  Sender: FDA-Public Use
  Company Number: JP-MYE-2022M1116664AA

PATIENT
  Age: 4 Year
  Sex: Female

DRUGS (2)
  1. EPINEPHRINE [Suspect]
     Active Substance: EPINEPHRINE
     Indication: Anaphylactic reaction
     Route: 030
  2. EPINEPHRINE [Suspect]
     Active Substance: EPINEPHRINE
     Indication: Milk allergy

REACTIONS (4)
  - Injection site laceration [Recovered/Resolved]
  - Wrong technique in product usage process [Unknown]
  - Injection site scar [Unknown]
  - Therapeutic response decreased [Unknown]
